FAERS Safety Report 4859902-4 (Version None)
Quarter: 2005Q4

REPORT INFORMATION
  Report Type: 
  Country: None (occurrence: None)
  Receive Date: 20051219
  Receipt Date: 20051206
  Transmission Date: 20060501
  Serious: Yes (Hospitalization)
  Sender: FDA-Public Use
  Company Number: 2005AP06307

PATIENT
  Age: 28409 Day
  Sex: Male
  Weight: 52 kg

DRUGS (4)
  1. IRESSA [Suspect]
     Indication: LUNG ADENOCARCINOMA
     Route: 048
     Dates: start: 20051111, end: 20051206
  2. CONIEL [Concomitant]
     Indication: HYPERTENSION
     Route: 048
     Dates: end: 20051123
  3. CARBOPLATIN [Concomitant]
  4. PACLITAXEL [Concomitant]

REACTIONS (6)
  - BLOOD PRESSURE DECREASED [None]
  - CONDITION AGGRAVATED [None]
  - FALL [None]
  - HEART RATE INCREASED [None]
  - METASTASES TO LUNG [None]
  - PNEUMONIA [None]
